FAERS Safety Report 8437106-6 (Version None)
Quarter: 2012Q2

REPORT INFORMATION
  Report Type: 
  Country: None (occurrence: None)
  Receive Date: 20120614
  Receipt Date: 20120409
  Transmission Date: 20120825
  Serious: No
  Sender: FDA-Public Use
  Company Number: US-AMGEN-USASP2012017919

PATIENT
  Age: 79 Year
  Sex: Female
  Weight: 61 kg

DRUGS (6)
  1. LISINOPRIL [Concomitant]
  2. DICLOFENAC [Concomitant]
  3. MISOPROSTOL [Concomitant]
  4. PROLIA [Suspect]
     Indication: OSTEOPOROSIS POSTMENOPAUSAL
     Dosage: 60 MG, Q6MO
     Dates: start: 20120210
  5. SIMVASTATIN [Concomitant]
  6. ALLOPURINOL [Concomitant]

REACTIONS (7)
  - PAIN IN JAW [None]
  - MASTICATION DISORDER [None]
  - BLOOD CALCIUM INCREASED [None]
  - ARTHRALGIA [None]
  - STRESS [None]
  - HEADACHE [None]
  - PAIN IN EXTREMITY [None]
